FAERS Safety Report 14372489 (Version 4)
Quarter: 2018Q2

REPORT INFORMATION
  Report Type: Report from Study
  Country: GB (occurrence: GB)
  Receive Date: 20180110
  Receipt Date: 20180425
  Transmission Date: 20180711
  Serious: Yes (Other)
  Sender: FDA-Public Use
  Company Number: GB-BRISTOL-MYERS SQUIBB COMPANY-BMS-2018-000477

PATIENT
  Age: 70 Year
  Sex: Female

DRUGS (2)
  1. ABATACEPT [Suspect]
     Active Substance: ABATACEPT
     Indication: RHEUMATOID ARTHRITIS
     Dosage: 125 MG, QWK
     Route: 058
     Dates: start: 20160412
  2. ABATACEPT [Suspect]
     Active Substance: ABATACEPT
     Indication: PRODUCT USED FOR UNKNOWN INDICATION
     Dosage: 125 MG, QWK
     Route: 058
     Dates: start: 20160809

REACTIONS (8)
  - Malaise [Unknown]
  - Lower respiratory tract infection [Unknown]
  - Fatigue [Unknown]
  - Drug ineffective [Unknown]
  - Fibrosis [Unknown]
  - Ankylosing spondylitis [Unknown]
  - Cough [Unknown]
  - Pain [Unknown]

NARRATIVE: CASE EVENT DATE: 20171228
